FAERS Safety Report 6374724-3 (Version None)
Quarter: 2009Q3

REPORT INFORMATION
  Report Type: 
  Country: None (occurrence: None)
  Receive Date: 20090924
  Receipt Date: 20090604
  Transmission Date: 20100115
  Serious: Yes (Other)
  Sender: FDA-Public Use
  Company Number: US-PFIZER INC-2009206613

PATIENT
  Age: 80 Year
  Sex: Female

DRUGS (1)
  1. DETROL [Suspect]
     Indication: URINARY INCONTINENCE
     Route: 062

REACTIONS (5)
  - APPLICATION SITE OEDEMA [None]
  - DRUG INEFFECTIVE [None]
  - HYPERSENSITIVITY [None]
  - LOCALISED OEDEMA [None]
  - THROAT TIGHTNESS [None]
